FAERS Safety Report 5913513-8 (Version None)
Quarter: 2008Q4

REPORT INFORMATION
  Report Type: 
  Country: None (occurrence: None)
  Receive Date: 20081009
  Receipt Date: 20080930
  Transmission Date: 20090506
  Serious: Yes (Hospitalization)
  Sender: FDA-Public Use
  Company Number: JP-AMGEN-US295052

PATIENT
  Sex: Female
  Weight: 85 kg

DRUGS (12)
  1. ENBREL [Suspect]
     Indication: RHEUMATOID ARTHRITIS
     Route: 058
     Dates: start: 20060829
  2. RHEUMATREX [Suspect]
     Indication: RHEUMATOID ARTHRITIS
     Route: 048
     Dates: end: 20070701
  3. RHEUMATREX [Suspect]
     Route: 048
     Dates: start: 20070701, end: 20080710
  4. MEDROL [Concomitant]
     Indication: RHEUMATOID ARTHRITIS
     Route: 048
  5. PYDOXAL [Concomitant]
     Indication: RHEUMATOID ARTHRITIS
     Route: 048
  6. ASPARTATE CALCIUM [Concomitant]
     Indication: OSTEOPOROSIS
     Dosage: UNKNOWN
     Route: 048
  7. APLACE [Concomitant]
     Indication: RHEUMATOID ARTHRITIS
     Route: 048
  8. CYANOCOBALAMIN [Concomitant]
     Indication: SCIATICA
     Route: 048
  9. EPINASTINE HYDROCHLORIDE [Concomitant]
     Indication: DERMATITIS ALLERGIC
     Route: 048
  10. ROCALTROL [Concomitant]
     Indication: OSTEOPOROSIS
     Route: 048
  11. FOLIAMIN [Concomitant]
     Route: 048
  12. ACINON [Concomitant]
     Indication: RHEUMATOID ARTHRITIS
     Route: 048

REACTIONS (2)
  - BONE MARROW FAILURE [None]
  - HEADACHE [None]
